FAERS Safety Report 8370162-2 (Version None)
Quarter: 2012Q2

REPORT INFORMATION
  Report Type: 
  Country: None (occurrence: None)
  Receive Date: 20120518
  Receipt Date: 20120514
  Transmission Date: 20120825
  Serious: Yes (Death, Other)
  Sender: FDA-Public Use
  Company Number: US-BAYER-200923798NA

PATIENT
  Age: 50 Year
  Sex: Male
  Weight: 69.8 kg

DRUGS (41)
  1. EPOGEN [Concomitant]
  2. RENAGEL [Concomitant]
  3. PROCARDIA [Concomitant]
  4. ASPIRIN [Concomitant]
  5. LOPRESSOR [Concomitant]
  6. UNSPECIFIED GADOLINIUM BASED CONTRAST AGENT [Suspect]
     Indication: ANGIOGRAM
     Dates: start: 20001001, end: 20001015
  7. OMNISCAN [Suspect]
     Indication: NUCLEAR MAGNETIC RESONANCE IMAGING
  8. MINOXIDIL [Concomitant]
  9. FERRLECIT [Concomitant]
  10. ZEMPLAR [Concomitant]
  11. COREG [Concomitant]
  12. NORVASC [Concomitant]
  13. CALCIUM CARBONATE [Concomitant]
  14. UNSPECIFIED GADOLINIUM BASED CONTRAST AGENT [Suspect]
     Indication: NUCLEAR MAGNETIC RESONANCE IMAGING ABDOMINAL
     Dosage: UNK
     Dates: start: 20011217, end: 20011217
  15. OPTIMARK [Suspect]
     Indication: NUCLEAR MAGNETIC RESONANCE IMAGING
  16. MULTIHANCE [Suspect]
     Indication: NUCLEAR MAGNETIC RESONANCE IMAGING
  17. LANTHANUM CARBONATE [Concomitant]
  18. RENAPHRO [Concomitant]
  19. IMURAN [Concomitant]
  20. DIGOXIN [Concomitant]
  21. FLORINEF [Concomitant]
  22. CORTISONE ACETATE [Concomitant]
  23. MAGNEVIST [Suspect]
     Indication: NUCLEAR MAGNETIC RESONANCE IMAGING
     Dosage: 48 ML, ONCE
     Route: 042
     Dates: start: 20000205, end: 20000205
  24. MAGNEVIST [Suspect]
     Dosage: 39 ML, ONCE
     Route: 042
     Dates: start: 20060726, end: 20060726
  25. PLAQUENIL [Concomitant]
  26. MICARDIS [Concomitant]
  27. AMIODARONE HCL [Concomitant]
  28. DARBEPOETIN ALFA [Concomitant]
  29. MAGNEVIST [Suspect]
     Dosage: 30 ML, ONCE
     Route: 042
     Dates: start: 20000505, end: 20000505
  30. PREDNISONE [Concomitant]
  31. HECTOROL [Concomitant]
  32. VANCOMYCIN [Concomitant]
  33. DARBEPOETIN ALFA [Concomitant]
  34. PROHANCE [Suspect]
     Indication: NUCLEAR MAGNETIC RESONANCE IMAGING
  35. PHOSLO [Concomitant]
  36. FOSRENOL [Concomitant]
  37. MAGNEVIST [Suspect]
     Dosage: 40 ML, ONCE
     Route: 042
     Dates: start: 20060809, end: 20060809
  38. UNSPECIFIED GADOLINIUM BASED CONTRAST AGENT [Suspect]
     Dosage: UNK
     Dates: start: 20060714, end: 20060714
  39. CLONIDINE [Concomitant]
  40. PERCOCET [Concomitant]
  41. OXYCET [Concomitant]

REACTIONS (18)
  - GENERAL PHYSICAL HEALTH DETERIORATION [None]
  - MUSCULAR WEAKNESS [None]
  - ARTHRALGIA [None]
  - JOINT STIFFNESS [None]
  - GAIT DISTURBANCE [None]
  - SKIN FIBROSIS [None]
  - PAIN [None]
  - MOBILITY DECREASED [None]
  - NEPHROGENIC SYSTEMIC FIBROSIS [None]
  - FIBROSIS [None]
  - SKIN INDURATION [None]
  - SKIN DISCOLOURATION [None]
  - OEDEMA PERIPHERAL [None]
  - SKIN HYPERTROPHY [None]
  - MUSCLE CONTRACTIONS INVOLUNTARY [None]
  - MUSCULOSKELETAL STIFFNESS [None]
  - JOINT RANGE OF MOTION DECREASED [None]
  - SKIN HYPERPIGMENTATION [None]
